FAERS Safety Report 11234264 (Version 2)
Quarter: 2015Q3

REPORT INFORMATION
  Report Type: Report from Study
  Country: SK (occurrence: SK)
  Receive Date: 20150702
  Receipt Date: 20150722
  Transmission Date: 20151125
  Serious: Yes (Hospitalization, Other)
  Sender: FDA-Public Use
  Company Number: SK-BIOGENIDEC-2015BI087078

PATIENT
  Age: 44 Year
  Sex: Female
  Weight: 71 kg

DRUGS (2)
  1. AVONEX [Suspect]
     Active Substance: INTERFERON BETA-1A
     Indication: PRODUCT USED FOR UNKNOWN INDICATION
     Route: 030
     Dates: start: 20121221
  2. BACLOFEN. [Concomitant]
     Active Substance: BACLOFEN
     Indication: MULTIPLE SCLEROSIS

REACTIONS (2)
  - Ataxia [Unknown]
  - Paraparesis [Recovered/Resolved]

NARRATIVE: CASE EVENT DATE: 20140623
